FAERS Safety Report 14310943 (Version 4)
Quarter: 2020Q1

REPORT INFORMATION
  Report Type: Spontaneous
  Country: US (occurrence: US)
  Receive Date: 20171221
  Receipt Date: 20200305
  Transmission Date: 20200409
  Serious: Yes (Hospitalization, Other)
  Sender: FDA-Public Use
  Company Number: US-SA-2017SA140831

PATIENT
  Sex: Female

DRUGS (2)
  1. BRILINTA [Concomitant]
     Active Substance: TICAGRELOR
  2. PLAVIX [Suspect]
     Active Substance: CLOPIDOGREL BISULFATE
     Dosage: UNK UNK,UNK
     Route: 048
     Dates: start: 2006

REACTIONS (8)
  - Cerebrovascular accident [Unknown]
  - Cardiac disorder [Unknown]
  - Haemorrhage [Unknown]
  - Epistaxis [Unknown]
  - Peripheral swelling [Unknown]
  - Dyspnoea [Unknown]
  - Hypersensitivity [Unknown]
  - Adverse event [Unknown]
